FAERS Safety Report 16239475 (Version 1)
Quarter: 2019Q2

REPORT INFORMATION
  Report Type: Spontaneous
  Country: JP (occurrence: JP)
  Receive Date: 20190425
  Receipt Date: 20190425
  Transmission Date: 20190711
  Serious: Yes (Hospitalization)
  Sender: FDA-Public Use
  Company Number: JP-ELI_LILLY_AND_COMPANY-JP201904012960

PATIENT
  Sex: Female
  Weight: 35.3 kg

DRUGS (8)
  1. FEBURIC [Suspect]
     Active Substance: FEBUXOSTAT
     Dosage: 40 MG
     Route: 048
     Dates: start: 20140909, end: 20141007
  2. REMINYL [Suspect]
     Active Substance: GALANTAMINE
     Indication: DEMENTIA
     Dosage: 8 MG, BID
     Route: 048
     Dates: start: 20121214, end: 20141110
  3. EVISTA [Suspect]
     Active Substance: RALOXIFENE HYDROCHLORIDE
     Indication: OSTEOPOROSIS
     Dosage: 60 MG, DAILY
     Route: 048
     Dates: start: 20121017, end: 20141110
  4. FEBURIC [Suspect]
     Active Substance: FEBUXOSTAT
     Dosage: 20 MG
     Route: 048
     Dates: start: 20140718, end: 20140908
  5. METHYCOOL [Suspect]
     Active Substance: METHYLCOBALAMIN
     Indication: NEUROPATHY PERIPHERAL
     Dosage: 500 UG, TID
     Route: 048
     Dates: start: 20120820, end: 20141110
  6. ONEALFA [Suspect]
     Active Substance: ALFACALCIDOL
     Indication: OSTEOPOROSIS
     Dosage: 1 UG, DAILY
     Route: 048
     Dates: start: 20121017, end: 20141110
  7. FEBURIC [Suspect]
     Active Substance: FEBUXOSTAT
     Indication: HYPERURICAEMIA
     Dosage: 10 MG, DAILY
     Route: 048
     Dates: start: 20140620, end: 20140717
  8. FEBURIC [Suspect]
     Active Substance: FEBUXOSTAT
     Dosage: 20 MG
     Route: 048
     Dates: start: 20141008, end: 20141110

REACTIONS (2)
  - Acute kidney injury [Recovered/Resolved]
  - Femur fracture [Unknown]

NARRATIVE: CASE EVENT DATE: 20140909
